FAERS Safety Report 19012368 (Version 3)
Quarter: 2021Q2

REPORT INFORMATION
  Report Type: Spontaneous
  Country: US (occurrence: US)
  Receive Date: 20210316
  Receipt Date: 20210512
  Transmission Date: 20210717
  Serious: Yes (Life-Threatening, Other)
  Sender: FDA-Public Use
  Company Number: US-ASTRAZENECA-2021A130640

PATIENT
  Age: 77 Year
  Sex: Male
  Weight: 54.4 kg

DRUGS (4)
  1. SEROQUEL [Suspect]
     Active Substance: QUETIAPINE FUMARATE
     Indication: DEMENTIA
     Dosage: 100.0MG UNKNOWN
     Route: 048
  2. KLONOPIN [Concomitant]
     Active Substance: CLONAZEPAM
     Indication: ALCOHOL USE
     Dosage: UNKNOWN
     Route: 048
  3. DIAZEPAM. [Concomitant]
     Active Substance: DIAZEPAM
     Dosage: UNKNOWN
     Route: 048
  4. SEROQUEL [Suspect]
     Active Substance: QUETIAPINE FUMARATE
     Indication: DEMENTIA
     Route: 048
     Dates: end: 202103

REACTIONS (17)
  - Decubitus ulcer [Unknown]
  - Anal incontinence [Unknown]
  - Apallic syndrome [Unknown]
  - Eating disorder [Unknown]
  - Back pain [Unknown]
  - Cerebral disorder [Unknown]
  - Coma [Unknown]
  - Haemoglobin decreased [Unknown]
  - Arterial disorder [Unknown]
  - Rib deformity [Unknown]
  - Weight decreased [Unknown]
  - Loss of personal independence in daily activities [Unknown]
  - Prescribed overdose [Unknown]
  - Drug abuse [Unknown]
  - Skin discolouration [Unknown]
  - Movement disorder [Unknown]
  - Hallucination [Unknown]

NARRATIVE: CASE EVENT DATE: 202012
